FAERS Safety Report 7833789-X (Version None)
Quarter: 2011Q4

REPORT INFORMATION
  Report Type: 
  Country: None (occurrence: None)
  Receive Date: 20111020
  Receipt Date: 20111006
  Transmission Date: 20120403
  Serious: Yes (Hospitalization)
  Sender: FDA-Public Use
  Company Number: LTI2011A00258

PATIENT
  Age: 46 Year
  Sex: Female

DRUGS (4)
  1. LEVEMIR [Concomitant]
  2. CRESTOR [Concomitant]
  3. ACTOS [Suspect]
     Indication: DIABETES MELLITUS
     Dosage: 1 DF (1 DF, 1 IN 1 D), ORAL
     Route: 048
     Dates: start: 20020101, end: 20110501
  4. DIAMICRON (GLICLAZIDE) [Concomitant]

REACTIONS (2)
  - CARCINOMA IN SITU [None]
  - BLADDER CANCER [None]
